FAERS Safety Report 13450124 (Version 1)
Quarter: 2017Q2

REPORT INFORMATION
  Report Type: Spontaneous
  Country: US (occurrence: US)
  Receive Date: 20170417
  Receipt Date: 20170417
  Transmission Date: 20170830
  Serious: No
  Sender: FDA-Public Use
  Company Number: US-BION-20160720

PATIENT
  Age: 71 Year
  Sex: Male
  Weight: 95.25 kg

DRUGS (2)
  1. ALEVE [Suspect]
     Active Substance: NAPROXEN SODIUM
     Dosage: 1 DF UNK
     Route: 048
     Dates: end: 20161114
  2. EQUATE 81 ASPIRIN [Concomitant]

REACTIONS (4)
  - Poor quality drug administered [Unknown]
  - Product leakage [Unknown]
  - Product use in unapproved indication [Unknown]
  - Wrong technique in product usage process [Unknown]
